FAERS Safety Report 16713015 (Version 1)
Quarter: 2019Q3

REPORT INFORMATION
  Report Type: Spontaneous
  Country: GB (occurrence: GB)
  Receive Date: 20190817
  Receipt Date: 20190817
  Transmission Date: 20191004
  Serious: Yes (Other)
  Sender: FDA-Public Use
  Company Number: GB-ACCORD-151702

PATIENT
  Age: 45 Year
  Sex: Female
  Weight: 66.2 kg

DRUGS (3)
  1. IBUPROFEN. [Concomitant]
     Active Substance: IBUPROFEN
  2. AMITRIPTYLINE [Suspect]
     Active Substance: AMITRIPTYLINE
     Indication: NEUROPATHY PERIPHERAL
     Dosage: FIRST 10MG THEN 5 DAYS LATER 20MG AT NIGHT
     Route: 048
     Dates: start: 20190619, end: 20190701
  3. CODEINE PHOSPHATE/PARACETAMOL [Concomitant]
     Dosage: 8/500MG

REACTIONS (1)
  - Epistaxis [Recovered/Resolved]

NARRATIVE: CASE EVENT DATE: 20190623
